FAERS Safety Report 24987011 (Version 1)
Quarter: 2025Q1

REPORT INFORMATION
  Report Type: Spontaneous
  Country: US (occurrence: US)
  Receive Date: 20250219
  Receipt Date: 20250219
  Transmission Date: 20250409
  Serious: No
  Sender: CSL BEHRING
  Company Number: US-BEH-2025196681

PATIENT

DRUGS (2)
  1. RHOPHYLAC [Suspect]
     Active Substance: HUMAN RHO(D) IMMUNE GLOBULIN
     Route: 065
     Dates: start: 202412
  2. RHOPHYLAC [Suspect]
     Active Substance: HUMAN RHO(D) IMMUNE GLOBULIN
     Route: 065
     Dates: start: 202412

REACTIONS (1)
  - Antibody test positive [Recovered/Resolved]

NARRATIVE: CASE EVENT DATE: 20250101
